FAERS Safety Report 7126671-7 (Version None)
Quarter: 2010Q4

REPORT INFORMATION
  Report Type: 
  Country: None (occurrence: None)
  Receive Date: 20101129
  Receipt Date: 20101123
  Transmission Date: 20110411
  Serious: Yes (Other)
  Sender: FDA-Public Use
  Company Number: DE-ROCHE-744218

PATIENT
  Sex: Female

DRUGS (3)
  1. PEGASYS [Suspect]
     Route: 065
  2. RIBAVIRIN [Suspect]
     Route: 065
  3. AMANTADINE HCL [Suspect]
     Route: 065

REACTIONS (2)
  - PERIODONTAL DISEASE [None]
  - TOOTH LOSS [None]
